FAERS Safety Report 8545651-8 (Version None)
Quarter: 2012Q3

REPORT INFORMATION
  Report Type: 
  Country: None (occurrence: None)
  Receive Date: 20120727
  Receipt Date: 20120720
  Transmission Date: 20120928
  Serious: Yes (Other)
  Sender: FDA-Public Use
  Company Number: PT-PFIZER INC-2012117458

PATIENT
  Age: 65 Year
  Sex: Male

DRUGS (7)
  1. MORFEX [Concomitant]
     Indication: ANXIETY
     Dosage: 30 MG, 1X/DAY
  2. MEDIPAX [Concomitant]
     Indication: ANXIETY
     Dosage: 5 MG, 2X/DAY
  3. SINVASTATINA WINTHROP [Concomitant]
     Indication: BLOOD CHOLESTEROL INCREASED
     Dosage: UNK
  4. ACETAMINOPHEN [Suspect]
     Indication: TOOTH EXTRACTION
     Dosage: 1 G, 1X/DAY
     Route: 048
  5. DOGMATIL [Concomitant]
     Dosage: 50 MG, 2X/DAY
  6. CAVERJECT [Suspect]
     Indication: ERECTILE DYSFUNCTION
     Dosage: 20 UG, AS NEEDED
  7. BIALZEPAM [Concomitant]
     Indication: ANXIETY
     Dosage: 10 MG, 1X/DAY

REACTIONS (2)
  - TOOTH DISORDER [None]
  - GAMMA-GLUTAMYLTRANSFERASE INCREASED [None]
